FAERS Safety Report 22927605 (Version 2)
Quarter: 2024Q3

REPORT INFORMATION
  Report Type: Spontaneous
  Country: DE (occurrence: DE)
  Receive Date: 20230911
  Receipt Date: 20240910
  Transmission Date: 20241016
  Serious: No
  Sender: ALKEM
  Company Number: DE-ALKEM LABORATORIES LIMITED-DE-ALKEM-2023-02184

PATIENT
  Age: 46 Year
  Sex: Male
  Weight: 58 kg

DRUGS (3)
  1. PREGABALIN [Suspect]
     Active Substance: PREGABALIN
     Indication: Adjuvant therapy
     Dosage: UNK
     Route: 065
  2. NAGLAZYME [Suspect]
     Active Substance: GALSULFASE
     Indication: Product used for unknown indication
     Dosage: UNK
     Route: 042
  3. CORTISONE [Concomitant]
     Active Substance: CORTISONE
     Indication: Product used for unknown indication
     Dosage: UNK
     Route: 065

REACTIONS (10)
  - Coronavirus infection [Recovering/Resolving]
  - Head discomfort [Recovering/Resolving]
  - Ear discomfort [Recovering/Resolving]
  - Weight decreased [Recovering/Resolving]
  - Decreased appetite [Recovered/Resolved]
  - Skin burning sensation [Recovering/Resolving]
  - Fatigue [Not Recovered/Not Resolved]
  - Dizziness [Recovering/Resolving]
  - Pain [Recovering/Resolving]
  - Constipation [Recovered/Resolved]
